FAERS Safety Report 13610283 (Version 1)
Quarter: 2017Q2

REPORT INFORMATION
  Report Type: Spontaneous
  Country: TW (occurrence: TW)
  Receive Date: 20170605
  Receipt Date: 20170605
  Transmission Date: 20170830
  Serious: Yes (Life-Threatening, Hospitalization, Other)
  Sender: FDA-Public Use
  Company Number: TW-TORRENT-00000140

PATIENT
  Age: 32 Year
  Sex: Male

DRUGS (5)
  1. FLUPENTIXOL [Concomitant]
     Active Substance: FLUPENTIXOL
  2. CLONAZEPAM. [Concomitant]
     Active Substance: CLONAZEPAM
  3. OLANZAPINE. [Suspect]
     Active Substance: OLANZAPINE
  4. BIPERIDEN [Concomitant]
     Active Substance: BIPERIDEN
  5. ESTAZOLAM. [Concomitant]
     Active Substance: ESTAZOLAM

REACTIONS (1)
  - Hyperammonaemia [Recovered/Resolved]

NARRATIVE: CASE EVENT DATE: 201608
